FAERS Safety Report 8374566-3 (Version None)
Quarter: 2012Q2

REPORT INFORMATION
  Report Type: 
  Country: None (occurrence: None)
  Receive Date: 20120521
  Receipt Date: 20120508
  Transmission Date: 20120825
  Serious: Yes (Other)
  Sender: FDA-Public Use
  Company Number: CH-TEVA-338099ISR

PATIENT
  Age: 37 Year
  Sex: Female

DRUGS (8)
  1. RESYL PLUS [Suspect]
     Dates: start: 20111217, end: 20111219
  2. DIPYRONE TAB [Suspect]
     Dates: start: 20111217, end: 20111220
  3. VOLTAREN [Suspect]
     Dates: start: 20111217, end: 20111201
  4. MYDOCALM [Suspect]
     Dates: start: 20111217, end: 20111221
  5. ACETYLCYSTEINE [Suspect]
     Dates: start: 20111217, end: 20111219
  6. SYMBICORT [Suspect]
     Dates: start: 20111217, end: 20111218
  7. IBUPROFEN TABLETS [Suspect]
     Dates: start: 20111217
  8. ACETAMINOPHEN [Suspect]
     Dates: start: 20111217

REACTIONS (1)
  - ABORTION SPONTANEOUS [None]
